FAERS Safety Report 7989120-2 (Version None)
Quarter: 2011Q4

REPORT INFORMATION
  Report Type: 
  Country: None (occurrence: None)
  Receive Date: 20111007
  Receipt Date: 20110818
  Transmission Date: 20120403
  Serious: No
  Sender: FDA-Public Use
  Company Number: 2011HGS-002490

PATIENT
  Age: 29 Year
  Sex: Female

DRUGS (7)
  1. SEROQUEL [Concomitant]
  2. TIMOLOL MALEATE [Concomitant]
  3. PLAQUENIL [Concomitant]
  4. LAMICTAL [Concomitant]
  5. LITHIUM CARBONATE [Concomitant]
  6. BENLYSTA [Suspect]
     Indication: SYSTEMIC LUPUS ERYTHEMATOSUS
     Dosage: 10 MG/KG, 1 IN 14 D, INTRAVENOUS
     Route: 042
     Dates: start: 20110701
  7. MELOXICAM [Concomitant]

REACTIONS (7)
  - FATIGUE [None]
  - MEMORY IMPAIRMENT [None]
  - DYSPHEMIA [None]
  - NEUROLOGICAL SYMPTOM [None]
  - PAIN IN EXTREMITY [None]
  - APHASIA [None]
  - PSYCHIATRIC SYMPTOM [None]
